FAERS Safety Report 10156484 (Version 4)
Quarter: 2014Q3

REPORT INFORMATION
  Report Type: Spontaneous
  Country: US (occurrence: None)
  Receive Date: 20140505
  Receipt Date: 20140801
  Transmission Date: 20150326
  Serious: Yes (Other)
  Sender: FDA-Public Use
  Company Number: 2014-US-004932

PATIENT
  Age: 29 Year
  Sex: Female
  Weight: 47.6 kg

DRUGS (6)
  1. XYREM [Suspect]
     Active Substance: SODIUM OXYBATE
     Indication: CATAPLEXY
     Dosage: DOSE ADJUSTMENTS, ORAL
     Route: 048
     Dates: start: 201110
  2. XYREM [Suspect]
     Active Substance: SODIUM OXYBATE
     Indication: NARCOLEPSY
     Dosage: DOSE ADJUSTMENTS, ORAL
     Route: 048
     Dates: start: 201110
  3. LEXAPRO [Concomitant]
     Active Substance: ESCITALOPRAM OXALATE
  4. ADDERALL [Concomitant]
     Active Substance: AMPHETAMINE ASPARTATE\AMPHETAMINE SULFATE\DEXTROAMPHETAMINE SACCHARATE\DEXTROAMPHETAMINE SULFATE
  5. PREDNISONE (PREDNISONE) [Concomitant]
     Active Substance: PREDNISONE
  6. IBUPROFEN (IBUPROFEN) [Concomitant]
     Active Substance: IBUPROFEN

REACTIONS (15)
  - Muscular weakness [None]
  - Erythema [None]
  - Rash [None]
  - Pain in extremity [None]
  - Undifferentiated connective tissue disease [None]
  - Raynaud^s phenomenon [None]
  - Musculoskeletal stiffness [None]
  - Fatigue [None]
  - Rheumatoid arthritis [None]
  - Myalgia [None]
  - Renal neoplasm [None]
  - Arthralgia [None]
  - Headache [None]
  - Systemic lupus erythematosus [None]
  - Confusional arousal [None]
